FAERS Safety Report 19889603 (Version 3)
Quarter: 2021Q4

REPORT INFORMATION
  Report Type: Spontaneous
  Country: US (occurrence: US)
  Receive Date: 20210928
  Receipt Date: 20211213
  Transmission Date: 20220303
  Serious: Yes (Hospitalization, Other)
  Sender: FDA-Public Use
  Company Number: US-INDIVIOR US-INDV-131193-2021

PATIENT

DRUGS (2)
  1. SUBOXONE [Suspect]
     Active Substance: BUPRENORPHINE HYDROCHLORIDE\NALOXONE HYDROCHLORIDE
     Indication: Product used for unknown indication
     Dosage: 1 MILLIGRAM, UNKNOWN
     Route: 002
     Dates: start: 20210111, end: 20210113
  2. CHANTIX [Suspect]
     Active Substance: VARENICLINE TARTRATE
     Indication: Smoking cessation therapy
     Dosage: 1 MILLIGRAM, UNKNOWN
     Route: 065
     Dates: start: 2021, end: 2021

REACTIONS (8)
  - Respiratory failure [Not Recovered/Not Resolved]
  - Loss of consciousness [Recovered/Resolved]
  - Confusional state [Unknown]
  - Euphoric mood [Unknown]
  - Vomiting [Recovered/Resolved]
  - Drug intolerance [Unknown]
  - Wrong technique in product usage process [Unknown]
  - Fatigue [Unknown]

NARRATIVE: CASE EVENT DATE: 20210101
